FAERS Safety Report 10258430 (Version 1)
Quarter: 2014Q2

REPORT INFORMATION
  Report Type: Spontaneous
  Country: ES (occurrence: ES)
  Receive Date: 20140625
  Receipt Date: 20140625
  Transmission Date: 20141212
  Serious: Yes (Hospitalization)
  Sender: FDA-Public Use
  Company Number: ES-SA-2014SA078600

PATIENT
  Age: 73 Year
  Sex: Female

DRUGS (8)
  1. SEGURIL [Suspect]
     Indication: PRODUCT USED FOR UNKNOWN INDICATION
     Route: 048
     Dates: start: 2013
  2. DIGOXIN [Interacting]
     Indication: PRODUCT USED FOR UNKNOWN INDICATION
     Dosage: 0.25?FREQUENCY: 1 TABLET PER DAY EXCEPT ON SATURDAY AND SUNDAY.
     Route: 048
     Dates: start: 201310, end: 20131023
  3. DEPAKINE CRONO [Concomitant]
  4. EUTIROX [Concomitant]
  5. DEPRAX [Concomitant]
  6. ALL OTHER THERAPEUTIC PRODUCTS [Concomitant]
  7. ADIRO [Concomitant]
  8. PANTOPRAZOLE [Concomitant]

REACTIONS (1)
  - Cardioactive drug level increased [Recovered/Resolved]
